FAERS Safety Report 22259429 (Version 1)
Quarter: 2023Q2

REPORT INFORMATION
  Report Type: Report from Study
  Country: JP (occurrence: JP)
  Receive Date: 20230427
  Receipt Date: 20230427
  Transmission Date: 20230722
  Serious: Yes (Other)
  Sender: FDA-Public Use
  Company Number: JP-MH-2023M1043586AA

PATIENT
  Age: 81 Year
  Sex: Female

DRUGS (3)
  1. CARBOPLATIN [Suspect]
     Active Substance: CARBOPLATIN
     Indication: Ovarian cancer
     Dosage: UNK
     Route: 065
  2. PACLITAXEL [Suspect]
     Active Substance: PACLITAXEL
     Indication: Ovarian cancer
     Dosage: UNK
     Route: 065
  3. NEDAPLATIN [Suspect]
     Active Substance: NEDAPLATIN
     Indication: Ovarian cancer
     Dosage: UNK
     Route: 065

REACTIONS (2)
  - Bone marrow failure [Unknown]
  - Aplastic anaemia [Unknown]
